FAERS Safety Report 9608160 (Version 2)
Quarter: 2014Q1

REPORT INFORMATION
  Report Type: Spontaneous
  Country: US (occurrence: US)
  Receive Date: 20131009
  Receipt Date: 20140113
  Transmission Date: 20141002
  Serious: Yes (Other)
  Sender: FDA-Public Use
  Company Number: US-PFIZER INC-2013285870

PATIENT
  Age: 65 Year
  Sex: Female
  Weight: 61.22 kg

DRUGS (1)
  1. METRONIDAZOLE [Suspect]
     Dosage: UNK

REACTIONS (3)
  - Anaphylactic shock [Unknown]
  - Drug hypersensitivity [Unknown]
  - Reaction to drug excipients [Unknown]
